FAERS Safety Report 4779542-5 (Version None)
Quarter: 2005Q3

REPORT INFORMATION
  Report Type: 
  Country: None (occurrence: None)
  Receive Date: 20050923
  Receipt Date: 20050909
  Transmission Date: 20060218
  Serious: Yes (Hospitalization)
  Sender: FDA-Public Use
  Company Number: HQWYE039915APR05

PATIENT
  Age: 59 Year
  Sex: Female
  Weight: 61.4 kg

DRUGS (10)
  1. PROGRAF [Suspect]
     Indication: PROPHYLAXIS AGAINST TRANSPLANT REJECTION
     Dosage: 4 MG 2X PER 1 DAY, NASOGASTRIC; VARYING DOSE FROM 3 MG DAILY TO 3 MG BID, NASOGASTRIC; 4 MG 2X PER 1
     Dates: start: 20050325, end: 20050412
  2. PROGRAF [Suspect]
     Indication: PROPHYLAXIS AGAINST TRANSPLANT REJECTION
     Dosage: 4 MG 2X PER 1 DAY, NASOGASTRIC; VARYING DOSE FROM 3 MG DAILY TO 3 MG BID, NASOGASTRIC; 4 MG 2X PER 1
     Dates: start: 20050413, end: 20050418
  3. PROGRAF [Suspect]
     Indication: PROPHYLAXIS AGAINST TRANSPLANT REJECTION
     Dosage: 4 MG 2X PER 1 DAY, NASOGASTRIC; VARYING DOSE FROM 3 MG DAILY TO 3 MG BID, NASOGASTRIC; 4 MG 2X PER 1
     Dates: start: 20050419
  4. CELLCEPT [Suspect]
     Indication: PROPHYLAXIS AGAINST TRANSPLANT REJECTION
     Dosage: 750 MG 2X PER 1 DAY, ORAL
     Route: 048
  5. PREDNISONE [Suspect]
     Indication: PROPHYLAXIS AGAINST TRANSPLANT REJECTION
     Dosage: 25 MG 1X PER 1 DAY, ORAL
     Route: 048
  6. ZENAPAX [Suspect]
     Indication: PROPHYLAXIS AGAINST TRANSPLANT REJECTION
  7. ATENOLOL [Concomitant]
  8. NORVASC [Concomitant]
  9. CLONIDINE [Concomitant]
  10. ISOPHANE INSULIN [Concomitant]

REACTIONS (15)
  - ANOREXIA [None]
  - BLOOD PRESSURE DECREASED [None]
  - CHEST PAIN [None]
  - DEEP VEIN THROMBOSIS [None]
  - DEPRESSED LEVEL OF CONSCIOUSNESS [None]
  - DYSPNOEA [None]
  - DYSPNOEA EXERTIONAL [None]
  - HAEMODYNAMIC INSTABILITY [None]
  - HYPERGLYCAEMIA [None]
  - INTERNATIONAL NORMALISED RATIO INCREASED [None]
  - PROTHROMBIN TIME PROLONGED [None]
  - PULMONARY EMBOLISM [None]
  - PULMONARY HYPERTENSION [None]
  - SPINAL OSTEOARTHRITIS [None]
  - VENTRICULAR HYPERTROPHY [None]
